FAERS Safety Report 6199650-4 (Version None)
Quarter: 2009Q2

REPORT INFORMATION
  Report Type: 
  Country: None (occurrence: None)
  Receive Date: 20090522
  Receipt Date: 20090512
  Transmission Date: 20091009
  Serious: Yes (Other)
  Sender: FDA-Public Use
  Company Number: US-PFIZER INC-2009212614

PATIENT
  Age: 44 Year
  Sex: Female
  Weight: 45.359 kg

DRUGS (2)
  1. LYRICA [Suspect]
     Indication: NEURALGIA
     Dosage: 25 MG, 2X/DAY
     Dates: start: 20090401
  2. KLONOPIN [Concomitant]
     Dosage: UNK

REACTIONS (3)
  - HYPERTENSION [None]
  - RASH [None]
  - SOMNOLENCE [None]
